FAERS Safety Report 19125962 (Version 2)
Quarter: 2021Q2

REPORT INFORMATION
  Report Type: Spontaneous
  Country: US (occurrence: US)
  Receive Date: 20210412
  Receipt Date: 20210428
  Transmission Date: 20210717
  Serious: Yes (Other)
  Sender: FDA-Public Use
  Company Number: US-BAUSCH-BL-2021-011178

PATIENT
  Age: 2 Year
  Sex: Female

DRUGS (16)
  1. ETOPOSIDE. [Suspect]
     Active Substance: ETOPOSIDE
     Dosage: THIRD DOSE
     Route: 042
  2. FLUCONAZOLE. [Concomitant]
     Active Substance: FLUCONAZOLE
     Indication: PROPHYLAXIS
  3. DEXAMETHASONE. [Suspect]
     Active Substance: DEXAMETHASONE
     Dosage: WEEK 3 AND 4 (BY MOUTH)
     Route: 048
  4. ETOPOSIDE. [Suspect]
     Active Substance: ETOPOSIDE
     Indication: HAEMOPHAGOCYTIC LYMPHOHISTIOCYTOSIS
     Dosage: FIRST TWO DOSES
     Route: 042
  5. DEXAMETHASONE. [Suspect]
     Active Substance: DEXAMETHASONE
     Dosage: WEEK 5 AND 6 (BY MOUTH)
     Route: 048
  6. EMAPALUMAB [Suspect]
     Active Substance: EMAPALUMAB
     Dosage: RECHALLENGED
     Route: 042
  7. ACYCLOVIR. [Concomitant]
     Active Substance: ACYCLOVIR
     Indication: PROPHYLAXIS
  8. ETOPOSIDE. [Suspect]
     Active Substance: ETOPOSIDE
     Dosage: INCREASED (FOR WEEKS 8 AND 9)
     Route: 042
  9. ETOPOSIDE. [Suspect]
     Active Substance: ETOPOSIDE
     Dosage: RECHALLENGED
     Route: 042
  10. EMAPALUMAB [Suspect]
     Active Substance: EMAPALUMAB
     Indication: HAEMOPHAGOCYTIC LYMPHOHISTIOCYTOSIS
     Dosage: WEEK 1, 2
     Route: 042
  11. EMAPALUMAB [Suspect]
     Active Substance: EMAPALUMAB
     Dosage: ONE DOSE ON WEEK 3 AND STOPPED AFTER WEEK 7
     Route: 042
  12. SULFAMETHOXAZOLE, TRIMETHOPRIM [Concomitant]
     Active Substance: SULFAMETHOXAZOLE\TRIMETHOPRIM
     Indication: PROPHYLAXIS
  13. METHOTREXATE. [Concomitant]
     Active Substance: METHOTREXATE
     Indication: IRRITABILITY
     Dosage: ON WEEK 1 AND WEEK 4
     Route: 037
  14. DEXAMETHASONE. [Suspect]
     Active Substance: DEXAMETHASONE
     Indication: HAEMOPHAGOCYTIC LYMPHOHISTIOCYTOSIS
     Dosage: ON WEEK 1 AND 2 (BY MOUTH)
     Route: 048
  15. DEXAMETHASONE. [Suspect]
     Active Substance: DEXAMETHASONE
     Dosage: FROM WEEK 7 TO 11 (BY MOUTH)
     Route: 048
  16. DEXAMETHASONE. [Suspect]
     Active Substance: DEXAMETHASONE
     Dosage: RECHALLENGED
     Route: 048

REACTIONS (1)
  - Staphylococcal bacteraemia [Recovered/Resolved]
